FAERS Safety Report 14344188 (Version 1)
Quarter: 2018Q1

REPORT INFORMATION
  Report Type: Spontaneous
  Country: US (occurrence: US)
  Receive Date: 20180102
  Receipt Date: 20180102
  Transmission Date: 20180509
  Serious: No
  Sender: FDA-Public Use
  Company Number: US-BAYER-2017-248617

PATIENT
  Sex: Female

DRUGS (2)
  1. STOOL SOFTENER (DOCUSATE) [Concomitant]
     Active Substance: DOCUSATE
  2. MIRALAX [Suspect]
     Active Substance: POLYETHYLENE GLYCOL 3350
     Route: 048

REACTIONS (6)
  - Anorectal discomfort [None]
  - Drug effect delayed [Unknown]
  - Product use issue [Unknown]
  - Gastrointestinal motility disorder [Unknown]
  - Diarrhoea [None]
  - Product prescribing issue [Unknown]
